FAERS Safety Report 18011111 (Version 1)
Quarter: 2020Q3

REPORT INFORMATION
  Report Type: Spontaneous
  Country: FR (occurrence: FR)
  Receive Date: 20200711
  Receipt Date: 20200711
  Transmission Date: 20201103
  Serious: Yes (Hospitalization)
  Sender: FDA-Public Use
  Company Number: NVSC2020FR191492

PATIENT
  Age: 68 Year
  Sex: Female
  Weight: 53 kg

DRUGS (2)
  1. COTELLIC [Suspect]
     Active Substance: COBIMETINIB
     Indication: MALIGNANT HISTIOCYTOSIS
     Dosage: 40 MG, QD
     Route: 048
     Dates: start: 20200410, end: 20200503
  2. MEKINIST [Suspect]
     Active Substance: TRAMETINIB DIMETHYL SULFOXIDE
     Indication: MALIGNANT HISTIOCYTOSIS
     Dosage: 2 MG, QD
     Route: 048
     Dates: start: 20191028, end: 20200103

REACTIONS (2)
  - Skin erosion [Recovered/Resolved]
  - Superinfection [Recovered/Resolved]

NARRATIVE: CASE EVENT DATE: 20200501
